FAERS Safety Report 23842589 (Version 1)
Quarter: 2024Q2

REPORT INFORMATION
  Report Type: Spontaneous
  Country: US (occurrence: None)
  Receive Date: 20240510
  Receipt Date: 20240510
  Transmission Date: 20240716
  Serious: Yes (Hospitalization)
  Sender: FDA-Public Use
  Company Number: 2024A106552

PATIENT
  Sex: Male

DRUGS (1)
  1. TAGRISSO [Suspect]
     Active Substance: OSIMERTINIB
     Indication: Non-small cell lung cancer
     Route: 048

REACTIONS (9)
  - Pleural effusion [Unknown]
  - Muscle atrophy [Unknown]
  - Skin wrinkling [Unknown]
  - Vision blurred [Unknown]
  - Condition aggravated [Unknown]
  - Rash [Unknown]
  - Acne [Unknown]
  - Dry skin [Unknown]
  - Pain [Unknown]
